FAERS Safety Report 25593668 (Version 1)
Quarter: 2025Q3

REPORT INFORMATION
  Report Type: Report from Study
  Country: CA (occurrence: CA)
  Receive Date: 20250722
  Receipt Date: 20250722
  Transmission Date: 20251021
  Serious: Yes (Other)
  Sender: ABBVIE
  Company Number: CA-ABBVIE-6373887

PATIENT
  Age: 46 Year
  Sex: Female

DRUGS (2)
  1. RINVOQ [Suspect]
     Active Substance: UPADACITINIB
     Indication: Colitis ulcerative
     Route: 048
     Dates: start: 202401
  2. RINVOQ [Suspect]
     Active Substance: UPADACITINIB
     Indication: Colitis ulcerative
     Dosage: LDD: 16 JUL 2025
     Route: 048

REACTIONS (7)
  - Large intestinal haemorrhage [Unknown]
  - Emotional disorder [Unknown]
  - Acne [Unknown]
  - Colitis [Unknown]
  - Skin disorder [Unknown]
  - Skin infection [Unknown]
  - Erythema [Unknown]

NARRATIVE: CASE EVENT DATE: 20240101
